FAERS Safety Report 15169543 (Version 2)
Quarter: 2018Q3

REPORT INFORMATION
  Report Type: Spontaneous
  Country: GB (occurrence: GB)
  Receive Date: 20180720
  Receipt Date: 20180917
  Transmission Date: 20181010
  Serious: Yes (Other)
  Sender: FDA-Public Use
  Company Number: GB-B.I. PHARMACEUTICALS,INC./RIDGEFIELD-2018-12-002401

PATIENT
  Age: 18 Year
  Sex: Male
  Weight: 42 kg

DRUGS (11)
  1. MAGNESIUM SULFATE. [Suspect]
     Active Substance: MAGNESIUM SULFATE
     Indication: PRODUCT USED FOR UNKNOWN INDICATION
     Route: 065
  2. FENTANYL. [Suspect]
     Active Substance: FENTANYL
     Indication: SEDATION
     Dosage: FENTANYL CONTINUE AS PART OF THE PATIENTS PAIN RELIEF AS A PATIENT CONTROLLED INFUSION.; IN TOTAL
     Route: 065
     Dates: start: 20180514, end: 20180516
  3. TRANEXAMIC ACID. [Suspect]
     Active Substance: TRANEXAMIC ACID
     Indication: SEDATION
     Route: 065
     Dates: start: 20180514, end: 20180514
  4. CATAPRES [Suspect]
     Active Substance: CLONIDINE HYDROCHLORIDE
     Indication: SEDATION
     Dosage: 4 ALIQUOTS OF 15 MICROGRAMS OVER SEVERAL HOURS; IN TOTAL
     Route: 065
     Dates: start: 20180514, end: 20180514
  5. MIDAZOLAM [Suspect]
     Active Substance: MIDAZOLAM HYDROCHLORIDE
     Indication: INDUCTION OF ANAESTHESIA
     Dosage: HALF AN HOUR BEFORE INDUCTION OF ANAESTHESIA
     Route: 065
     Dates: start: 20180514, end: 20180514
  6. GABAPENTIN. [Concomitant]
     Active Substance: GABAPENTIN
     Dosage: THE NIGHT BEFORE SURGERY AND ON THE MORNING OF SURGERY,; IN TOTAL
     Route: 065
     Dates: start: 20180513, end: 20180515
  7. DIAZEPAM. [Suspect]
     Active Substance: DIAZEPAM
     Indication: PROCEDURAL ANXIETY
     Dosage: STAT DOSE
     Route: 065
     Dates: start: 20180513, end: 20180513
  8. REMIFENTANIL [Suspect]
     Active Substance: REMIFENTANIL
     Indication: SEDATION
     Dosage: UNIT DOSE/DAILY DATE: 0.14 PER MINUTE
     Route: 065
     Dates: start: 20180514, end: 20180514
  9. KETAMINE [Suspect]
     Active Substance: KETAMINE
     Indication: SEDATION
     Dosage: 25 MG BEFORE SKIN INCISION AND 25 MG ABOUT AN OUR BEFORE THE END OF SURGERY.; IN TOTAL
     Route: 065
     Dates: start: 20180514, end: 20180514
  10. PROPOFOL. [Suspect]
     Active Substance: PROPOFOL
     Indication: SEDATION
     Dosage: UNIT DOSE/DAILY DOSE: 3.3 MCG/ML
     Route: 065
     Dates: start: 20180514, end: 20180514
  11. GABAPENTIN. [Concomitant]
     Active Substance: GABAPENTIN
     Indication: PRODUCT USED FOR UNKNOWN INDICATION
     Route: 065
     Dates: start: 20180513, end: 20180515

REACTIONS (7)
  - Disorientation [Recovered/Resolved]
  - Somnolence [Recovered/Resolved]
  - Nystagmus [Recovered/Resolved]
  - Aphasia [Recovered/Resolved]
  - Delirium [Recovered/Resolved]
  - Confusional state [Recovered/Resolved]
  - Drug interaction [Unknown]

NARRATIVE: CASE EVENT DATE: 20180514
